FAERS Safety Report 4960226-5 (Version None)
Quarter: 2006Q1

REPORT INFORMATION
  Report Type: 
  Country: None (occurrence: None)
  Receive Date: 20060328
  Receipt Date: 20060316
  Transmission Date: 20060701
  Serious: Yes (Disabling, Other)
  Sender: FDA-Public Use
  Company Number: 2006027558

PATIENT
  Age: 58 Year
  Sex: Female
  Weight: 78.0187 kg

DRUGS (6)
  1. CELEBREX [Suspect]
     Indication: RHEUMATOID ARTHRITIS
     Dosage: 200 MG (200 MG, 1 IN 1 D), ORAL
     Route: 048
  2. COREG [Concomitant]
  3. PREMARIN [Concomitant]
  4. VYTORIN [Concomitant]
  5. DIOVAN HCT [Concomitant]
  6. LASIX [Concomitant]

REACTIONS (3)
  - CONDITION AGGRAVATED [None]
  - INTERVERTEBRAL DISC DEGENERATION [None]
  - PAIN [None]
